FAERS Safety Report 9213123 (Version 1)
Quarter: 2013Q1

REPORT INFORMATION
  Report Type: Spontaneous
  Country: US (occurrence: None)
  Receive Date: 20120827
  Receipt Date: 20120827
  Transmission Date: 20140127
  Serious: No
  Sender: FDA-Public Use
  Company Number: 352321

PATIENT
  Age: 47 Year
  Sex: Female

DRUGS (1)
  1. VICTOZA [Suspect]
     Indication: TYPE 2 DIABETES MELLITUS
     Route: 050

REACTIONS (4)
  - Injection site discolouration [None]
  - Injection site haematoma [None]
  - Injection site swelling [None]
  - Injection site pain [None]
